FAERS Safety Report 7021447-3 (Version None)
Quarter: 2010Q3

REPORT INFORMATION
  Report Type: 
  Country: None (occurrence: None)
  Receive Date: 20100929
  Receipt Date: 20100921
  Transmission Date: 20110219
  Serious: Yes (Other)
  Sender: FDA-Public Use
  Company Number: GB-ELI_LILLY_AND_COMPANY-GB201009005488

PATIENT
  Age: 63 Year
  Sex: Male
  Weight: 127 kg

DRUGS (6)
  1. BYETTA [Suspect]
     Indication: DIABETES MELLITUS
     Dosage: 1.2 MG, UNK
     Route: 058
     Dates: start: 20100723, end: 20100824
  2. AMLODIPINE [Concomitant]
  3. CETIRIZINE HCL [Concomitant]
  4. DICLOFENAC SODIUM [Concomitant]
  5. METFORMIN [Concomitant]
  6. ASPIRIN [Concomitant]

REACTIONS (2)
  - BLOOD CREATININE INCREASED [None]
  - INCORRECT DOSE ADMINISTERED [None]
